FAERS Safety Report 21194052 (Version 1)
Quarter: 2022Q3

REPORT INFORMATION
  Report Type: Spontaneous
  Country: US (occurrence: US)
  Receive Date: 20220810
  Receipt Date: 20220810
  Transmission Date: 20221027
  Serious: No
  Sender: FDA-Public Use
  Company Number: US-drreddys-SPO/USA/22/0153130

PATIENT
  Age: 17 Year
  Sex: Male

DRUGS (2)
  1. ZENATANE [Suspect]
     Active Substance: ISOTRETINOIN
     Indication: Product used for unknown indication
     Dosage: RMA ISSUE DATE: 26 APRIL 2022 09:12:20 AM, 24 MAY 2022 04:51:16 PM, 27 JUNE 2022 12:52:52 PM
  2. ZENATANE [Suspect]
     Active Substance: ISOTRETINOIN
     Dosage: RMA ISSUE DATE: 17 FEBRUARY 2022 11:09:41 AM, 21 MARCH 2022 04:38:00 PM, 26 APRIL 2022 09:12:20 AM,

REACTIONS (1)
  - Medical observation abnormal [Unknown]
